FAERS Safety Report 24100141 (Version 1)
Quarter: 2024Q3

REPORT INFORMATION
  Report Type: Spontaneous
  Country: US (occurrence: US)
  Receive Date: 20240717
  Receipt Date: 20240717
  Transmission Date: 20241016
  Serious: Yes (Hospitalization, Other)
  Sender: NOVO NORDISK
  Company Number: US-NOVOPROD-1200711

PATIENT
  Age: 66 Year
  Sex: Male

DRUGS (1)
  1. OZEMPIC [Suspect]
     Active Substance: SEMAGLUTIDE
     Indication: Type 2 diabetes mellitus
     Dosage: TAKING TWICE WEEKLY
     Route: 058

REACTIONS (2)
  - Pancreatitis [Not Recovered/Not Resolved]
  - Inappropriate schedule of product administration [Unknown]
